FAERS Safety Report 22165253 (Version 2)
Quarter: 2023Q2

REPORT INFORMATION
  Report Type: Report from Study
  Country: US (occurrence: US)
  Receive Date: 20230403
  Receipt Date: 20230414
  Transmission Date: 20230721
  Serious: Yes (Other)
  Sender: FDA-Public Use
  Company Number: US-ABBVIE-4713228

PATIENT
  Age: 68 Year
  Sex: Female

DRUGS (14)
  1. RINVOQ [Suspect]
     Active Substance: UPADACITINIB
     Indication: Rheumatoid arthritis
     Dosage: FORM STRENGTH: 15 MILLIGRAM?FIRST ADMIN DATE: 23 MAR 2023
     Route: 048
     Dates: start: 20230323
  2. LUMIGAN [Concomitant]
     Active Substance: BIMATOPROST
     Indication: Product used for unknown indication
     Dosage: 0.01%
  3. HYDROCHLOROTHIAZIDE [Concomitant]
     Active Substance: HYDROCHLOROTHIAZIDE
     Indication: Product used for unknown indication
  4. TRAMADOL HYDROCHLORIDE [Concomitant]
     Active Substance: TRAMADOL HYDROCHLORIDE
     Indication: Product used for unknown indication
  5. OMEPRAZOLE [Concomitant]
     Active Substance: OMEPRAZOLE
     Indication: Product used for unknown indication
  6. TB2 [Concomitant]
     Indication: Product used for unknown indication
  7. CEPHALEXIN [Concomitant]
     Active Substance: CEPHALEXIN
     Indication: Product used for unknown indication
  8. PREDNISONE [Concomitant]
     Active Substance: PREDNISONE
     Indication: Product used for unknown indication
  9. FENOFIBRATE [Concomitant]
     Active Substance: FENOFIBRATE
     Indication: Product used for unknown indication
  10. LEVOTHYROXINE [Concomitant]
     Active Substance: LEVOTHYROXINE
     Indication: Product used for unknown indication
     Route: 048
  11. OXYCODONE [Concomitant]
     Active Substance: OXYCODONE
     Indication: Product used for unknown indication
  12. DEXILANT [Concomitant]
     Active Substance: DEXLANSOPRAZOLE
     Indication: Product used for unknown indication
  13. ROSUVASTATIN [Concomitant]
     Active Substance: ROSUVASTATIN
     Indication: Product used for unknown indication
     Route: 048
  14. ONDANSETRON [Concomitant]
     Active Substance: ONDANSETRON
     Indication: Product used for unknown indication

REACTIONS (9)
  - Knee arthroplasty [Not Recovered/Not Resolved]
  - Bone disorder [Not Recovered/Not Resolved]
  - Blindness [Not Recovered/Not Resolved]
  - Anaemia [Not Recovered/Not Resolved]
  - Musculoskeletal disorder [Not Recovered/Not Resolved]
  - Back disorder [Not Recovered/Not Resolved]
  - Hiatus hernia [Not Recovered/Not Resolved]
  - Pain [Not Recovered/Not Resolved]
  - Dysgraphia [Not Recovered/Not Resolved]

NARRATIVE: CASE EVENT DATE: 20230301
